FAERS Safety Report 18739955 (Version 2)
Quarter: 2021Q1

REPORT INFORMATION
  Report Type: Spontaneous
  Country: AU (occurrence: AU)
  Receive Date: 20210114
  Receipt Date: 20210118
  Transmission Date: 20210419
  Serious: Yes (Death)
  Sender: FDA-Public Use
  Company Number: AU-BIOVITRUM-2021AU0403

PATIENT
  Sex: Male

DRUGS (1)
  1. EMAPALUMAB [Suspect]
     Active Substance: EMAPALUMAB
     Indication: HAEMOPHAGOCYTIC LYMPHOHISTIOCYTOSIS
     Dosage: STARTED AT 1MG/KG AND INCREASED UP TO 10MG/KG OVER 8 WEEKS. GIVEN TWICE A WEEK
     Route: 042

REACTIONS (2)
  - Condition aggravated [Fatal]
  - Haemophagocytic lymphohistiocytosis [Fatal]
